FAERS Safety Report 5272646-2 (Version None)
Quarter: 2007Q1

REPORT INFORMATION
  Report Type: 
  Country: None (occurrence: None)
  Receive Date: 20070320
  Receipt Date: 20070320
  Transmission Date: 20070707
  Serious: Yes (Hospitalization)
  Sender: FDA-Public Use
  Company Number: None

PATIENT
  Age: 28 Year
  Sex: Female
  Weight: 81.6475 kg

DRUGS (2)
  1. HYDROXYPROGESTERONE CAPROATE [Suspect]
     Indication: PREMATURE BABY
     Dosage: 250 MG 1X PER WEEK, IM
     Route: 030
     Dates: start: 20070111, end: 20070118
  2. PRENATAL VITAMINS [Concomitant]

REACTIONS (4)
  - ANXIETY [None]
  - DEPRESSION [None]
  - DRUG EXPOSURE DURING PREGNANCY [None]
  - PARANOIA [None]
